FAERS Safety Report 18699614 (Version 3)
Quarter: 2021Q1

REPORT INFORMATION
  Report Type: Report from Study
  Country: CA (occurrence: CA)
  Receive Date: 20210104
  Receipt Date: 20210210
  Transmission Date: 20210419
  Serious: Yes (Hospitalization)
  Sender: FDA-Public Use
  Company Number: CA-INCYTE CORPORATION-2020IN011391

PATIENT

DRUGS (2)
  1. JAKAVI [Suspect]
     Active Substance: RUXOLITINIB
     Indication: SPLENOMEGALY
     Dosage: 20 MG, BID
     Route: 048
     Dates: start: 20201102, end: 20201227
  2. JAKAVI [Suspect]
     Active Substance: RUXOLITINIB
     Indication: MYELOFIBROSIS

REACTIONS (14)
  - Blood potassium increased [Recovered/Resolved]
  - Abdominal rigidity [Recovered/Resolved]
  - Abdominal discomfort [Unknown]
  - Haemorrhage [Unknown]
  - Asthenia [Unknown]
  - Sleep disorder [Recovering/Resolving]
  - Dyspnoea [Unknown]
  - Platelet count decreased [Unknown]
  - Red blood cell count decreased [Recovered/Resolved]
  - Spleen disorder [Unknown]
  - Pulmonary oedema [Unknown]
  - Fatigue [Not Recovered/Not Resolved]
  - Dizziness [Unknown]
  - Muscle spasms [Recovered/Resolved]

NARRATIVE: CASE EVENT DATE: 20201103
